FAERS Safety Report 14671426 (Version 2)
Quarter: 2019Q2

REPORT INFORMATION
  Report Type: Spontaneous
  Country: DE (occurrence: DE)
  Receive Date: 20180323
  Receipt Date: 20190606
  Transmission Date: 20190711
  Serious: Yes (Other)
  Sender: FDA-Public Use
  Company Number: DE-SUN PHARMACEUTICAL INDUSTRIES LTD-2018RR-167812

PATIENT
  Age: 74 Year
  Sex: Female
  Weight: 63 kg

DRUGS (3)
  1. L-THYROXIN [Suspect]
     Active Substance: LEVOTHYROXINE SODIUM
     Indication: HYPOTHYROIDISM
     Dosage: 70 MICROGRAM, QD
     Route: 065
  2. MELPERON [Suspect]
     Active Substance: MELPERONE
     Indication: INITIAL INSOMNIA
     Dosage: 25 MILLIGRAM, QD
     Route: 065
  3. ALENDRONSAURE BASICS EINMAL WOCHENTLICH 70MG TABLETTEN [Suspect]
     Active Substance: ALENDRONATE SODIUM
     Indication: OSTEOPOROSIS
     Dosage: 70 MILLIGRAM, 1/WEEK
     Route: 048
     Dates: start: 20160401, end: 201803

REACTIONS (8)
  - Lacrimation increased [Not Recovered/Not Resolved]
  - Sneezing [Not Recovered/Not Resolved]
  - Pruritus generalised [Unknown]
  - Foreign body sensation in eyes [Not Recovered/Not Resolved]
  - Eye pain [Not Recovered/Not Resolved]
  - Rhinorrhoea [Not Recovered/Not Resolved]
  - Pruritus generalised [Not Recovered/Not Resolved]
  - Paraesthesia [Not Recovered/Not Resolved]

NARRATIVE: CASE EVENT DATE: 2017
